FAERS Safety Report 6695957-2 (Version None)
Quarter: 2010Q2

REPORT INFORMATION
  Report Type: 
  Country: None (occurrence: None)
  Receive Date: 20100422
  Receipt Date: 20100422
  Transmission Date: 20101027
  Serious: Yes (Life-Threatening)
  Sender: FDA-Public Use
  Company Number: None

PATIENT
  Age: 72 Year
  Sex: Male
  Weight: 108.7 kg

DRUGS (1)
  1. WARFARIN SODIUM [Suspect]
     Indication: ATRIAL FIBRILLATION
     Dates: start: 20070404, end: 20100411

REACTIONS (5)
  - ANAEMIA [None]
  - HAEMATOMA [None]
  - HAEMORRHAGE [None]
  - PNEUMONIA [None]
  - THERAPEUTIC RESPONSE DECREASED [None]
